FAERS Safety Report 12597991 (Version 1)
Quarter: 2016Q3

REPORT INFORMATION
  Report Type: Spontaneous
  Country: US (occurrence: None)
  Receive Date: 20160726
  Receipt Date: 20160726
  Transmission Date: 20161109
  Serious: Yes (Other)
  Sender: FDA-Public Use
  Company Number: None

PATIENT
  Age: 68 Year
  Sex: Female
  Weight: 66.68 kg

DRUGS (8)
  1. OMEPRAZOLE. [Concomitant]
     Active Substance: OMEPRAZOLE
  2. PROPRANOLOL [Concomitant]
     Active Substance: PROPRANOLOL\PROPRANOLOL HYDROCHLORIDE
  3. ATORVASTIN [Concomitant]
     Active Substance: ATORVASTATIN
  4. RANITIDINE. [Concomitant]
     Active Substance: RANITIDINE
  5. AMLODIPINE [Concomitant]
     Active Substance: AMLODIPINE BESYLATE
  6. NABUMETONE. [Concomitant]
     Active Substance: NABUMETONE
  7. CYCLOBENZAPRINE [Concomitant]
     Active Substance: CYCLOBENZAPRINE
  8. DOXYCYCLINE (SUB. FOR-)VIBRAMYCIN [Suspect]
     Active Substance: DOXYCYCLINE
     Indication: PROCEDURAL PAIN
     Dosage: 1 PILL TWICE DAILY BY MOUTH
     Route: 048
     Dates: start: 20160320, end: 20160321

REACTIONS (2)
  - Hallucination, visual [None]
  - Insomnia [None]

NARRATIVE: CASE EVENT DATE: 20160320
